FAERS Safety Report 21590790 (Version 1)
Quarter: 2022Q4

REPORT INFORMATION
  Report Type: Spontaneous
  Country: US (occurrence: None)
  Receive Date: 20221111
  Receipt Date: 20221111
  Transmission Date: 20230113
  Serious: Yes (Hospitalization)
  Sender: FDA-Public Use
  Company Number: None

PATIENT
  Age: 74 Year
  Sex: Male
  Weight: 103 kg

DRUGS (9)
  1. OLANZAPINE [Suspect]
     Active Substance: OLANZAPINE
     Indication: Agitation
     Dosage: FREQUENCY : ONCE;?
     Route: 030
     Dates: start: 20220908, end: 20220908
  2. AZITHROMYCIN [Concomitant]
     Active Substance: AZITHROMYCIN
  3. CEFTRIAXONE [Concomitant]
     Active Substance: CEFTRIAXONE
  4. DIAZEPAM [Concomitant]
     Active Substance: DIAZEPAM
  5. HEPARIN [Concomitant]
     Active Substance: HEPARIN SODIUM
  6. VANCOMYCIN [Concomitant]
     Active Substance: VANCOMYCIN
  7. FENTANYL [Concomitant]
     Active Substance: FENTANYL
  8. NOREPINEPHRINE [Concomitant]
     Active Substance: NOREPINEPHRINE
  9. PROPOFOL [Concomitant]
     Active Substance: PROPOFOL

REACTIONS (5)
  - Stridor [None]
  - Unresponsive to stimuli [None]
  - Hypoxia [None]
  - Electrocardiogram QRS complex prolonged [None]
  - Electrocardiogram QT prolonged [None]

NARRATIVE: CASE EVENT DATE: 20220908
